FAERS Safety Report 5247823-7 (Version None)
Quarter: 2007Q1

REPORT INFORMATION
  Report Type: 
  Country: None (occurrence: None)
  Receive Date: 20070227
  Receipt Date: 20070215
  Transmission Date: 20070707
  Serious: Yes (Hospitalization)
  Sender: FDA-Public Use
  Company Number: GB-ROCHE-481931

PATIENT
  Age: 35 Year
  Sex: Female
  Weight: 53.4 kg

DRUGS (2)
  1. CAPECITABINE [Suspect]
     Indication: COLON CANCER
     Dosage: REPORTED DOSE: 56000 MG.  FOR 14 DAYS OF A THREE WEEK CYCLE.
     Route: 048
     Dates: start: 20060918
  2. BEVACIZUMAB [Suspect]
     Indication: COLON CANCER
     Route: 042
     Dates: start: 20061211

REACTIONS (1)
  - APPENDICITIS [None]
